FAERS Safety Report 9421067 (Version 1)
Quarter: 2013Q3

REPORT INFORMATION
  Report Type: Spontaneous
  Country: US (occurrence: US)
  Receive Date: 20130725
  Receipt Date: 20130725
  Transmission Date: 20140515
  Serious: Yes (Other)
  Sender: FDA-Public Use
  Company Number: US-BAYER-2013-089453

PATIENT
  Age: 83 Year
  Sex: Female
  Weight: 68.03 kg

DRUGS (1)
  1. PHILLIPS STOOL SOFTENER BULK DOCUSATE [Suspect]
     Indication: CONSTIPATION
     Dosage: 1 DF, QD
     Route: 048

REACTIONS (2)
  - Drug dependence [Not Recovered/Not Resolved]
  - Incorrect drug administration duration [None]
